FAERS Safety Report 8564609-6 (Version None)
Quarter: 2012Q3

REPORT INFORMATION
  Report Type: 
  Country: None (occurrence: None)
  Receive Date: 20120803
  Receipt Date: 20120727
  Transmission Date: 20120928
  Serious: Yes (Hospitalization, Other)
  Sender: FDA-Public Use
  Company Number: TW-PFIZER INC-2012178219

PATIENT
  Age: 50 Year
  Sex: Male

DRUGS (11)
  1. XANAX [Concomitant]
  2. CORDARONE [Concomitant]
     Indication: ATRIAL FIBRILLATION
  3. HYDROXYCHLOROQUINE [Concomitant]
     Indication: RHEUMATOID ARTHRITIS
  4. VITAMIN B COMPLEX CAP [Concomitant]
     Indication: RHEUMATOID ARTHRITIS
  5. SYMBICORT [Concomitant]
     Indication: INTERSTITIAL LUNG DISEASE
  6. REVATIO [Suspect]
     Indication: PULMONARY HYPERTENSION
     Dosage: 20 MG, 2X/DAY
     Route: 048
     Dates: start: 20120301, end: 20120701
  7. PREDNISOLONE [Concomitant]
     Indication: RHEUMATOID ARTHRITIS
  8. ACETYLCYSTEINE [Concomitant]
     Indication: INTERSTITIAL LUNG DISEASE
  9. DEXTROMETHORPHAN [Concomitant]
     Indication: INTERSTITIAL LUNG DISEASE
  10. TAMSULOSIN [Concomitant]
     Indication: BENIGN PROSTATIC HYPERPLASIA
  11. FOLIC ACID [Concomitant]
     Indication: RHEUMATOID ARTHRITIS

REACTIONS (1)
  - OESOPHAGEAL VARICES HAEMORRHAGE [None]
